FAERS Safety Report 4557052-8 (Version None)
Quarter: 2005Q1

REPORT INFORMATION
  Report Type: 
  Country: None (occurrence: None)
  Receive Date: 20050120
  Receipt Date: 20050113
  Transmission Date: 20050727
  Serious: Yes (Other)
  Sender: FDA-Public Use
  Company Number: PHBS2005IT00902

PATIENT
  Age: 54 Year
  Sex: Male

DRUGS (2)
  1. IMATINIB [Suspect]
     Indication: CHRONIC MYELOID LEUKAEMIA
     Dosage: 600 MG/DAY
     Route: 065
  2. IMATINIB [Suspect]
     Dosage: 500 MG/DAY
     Route: 065

REACTIONS (4)
  - DERMATITIS [None]
  - DERMATOSIS [None]
  - EPITHELIOMA [None]
  - SKIN NEOPLASM EXCISION [None]
